FAERS Safety Report 5695854-5 (Version None)
Quarter: 2008Q2

REPORT INFORMATION
  Report Type: 
  Country: None (occurrence: None)
  Receive Date: 20080407
  Receipt Date: 20080326
  Transmission Date: 20081010
  Serious: Yes (Other)
  Sender: FDA-Public Use
  Company Number: US-ROCHE-521785

PATIENT
  Sex: Male
  Weight: 52.6 kg

DRUGS (3)
  1. ACCUTANE [Suspect]
     Indication: ACNE
     Route: 048
     Dates: start: 19960112, end: 19961018
  2. ACCUTANE [Suspect]
     Route: 048
     Dates: start: 19970127, end: 19970227
  3. ACCUTANE [Suspect]
     Route: 048
     Dates: start: 19970710, end: 19980109

REACTIONS (7)
  - ANAEMIA [None]
  - CROHN'S DISEASE [None]
  - DEPRESSION [None]
  - HELICOBACTER GASTRITIS [None]
  - ILEITIS [None]
  - INFLAMMATORY BOWEL DISEASE [None]
  - INTESTINAL HAEMORRHAGE [None]
